FAERS Safety Report 20622922 (Version 1)
Quarter: 2022Q1

REPORT INFORMATION
  Report Type: Report from Study
  Country: US (occurrence: US)
  Receive Date: 20220322
  Receipt Date: 20220322
  Transmission Date: 20220424
  Serious: No
  Sender: FDA-Public Use
  Company Number: US-KYOWAKIRIN-2022BKK003839

PATIENT

DRUGS (2)
  1. CRYSVITA [Suspect]
     Active Substance: BUROSUMAB-TWZA
     Indication: Hereditary hypophosphataemic rickets
     Dosage: 0.8 MG/KG IN PATIENTS { 18 YEARS OF AGE, EVERY 2 WEEKS
     Route: 058
  2. CRYSVITA [Suspect]
     Active Substance: BUROSUMAB-TWZA
     Dosage: 1 MG/KG IN PATIENTS 18 YEARS OLD AND GREATER, EVERY 4 WEEKS
     Route: 058

REACTIONS (2)
  - Headache [Unknown]
  - Injection site reaction [Unknown]
